FAERS Safety Report 24070389 (Version 1)
Quarter: 2024Q3

REPORT INFORMATION
  Report Type: Spontaneous
  Country: US (occurrence: US)
  Receive Date: 20240710
  Receipt Date: 20240710
  Transmission Date: 20241017
  Serious: No
  Sender: ROCHE
  Company Number: US-ROCHE-3474400

PATIENT

DRUGS (1)
  1. ALECENSA [Suspect]
     Active Substance: ALECTINIB HYDROCHLORIDE
     Indication: Chronic lymphocytic leukaemia
     Route: 065

REACTIONS (4)
  - Lymphocyte count increased [Unknown]
  - Urinary tract infection [Unknown]
  - White blood cell count increased [Unknown]
  - Off label use [Unknown]
